FAERS Safety Report 25991096 (Version 1)
Quarter: 2025Q4

REPORT INFORMATION
  Report Type: Spontaneous
  Country: EU (occurrence: EU)
  Receive Date: 20251103
  Receipt Date: 20251103
  Transmission Date: 20260118
  Serious: Yes (Hospitalization, Other)
  Sender: BRISTOL-MYERS SQUIBB COMPANY
  Company Number: None

PATIENT
  Age: 68 Year
  Sex: Male
  Weight: 72 kg

DRUGS (2)
  1. YERVOY [Suspect]
     Active Substance: IPILIMUMAB
     Indication: Metastatic mesothelioma
     Route: 042
     Dates: start: 20231027, end: 20250514
  2. OPDIVO [Suspect]
     Active Substance: NIVOLUMAB
     Indication: Metastatic mesothelioma
     Route: 042
     Dates: start: 20231027, end: 20250611

REACTIONS (3)
  - Immune-mediated hypophysitis [Recovered/Resolved with Sequelae]
  - Blood creatine phosphokinase increased [Recovered/Resolved]
  - Hepatic cytolysis [Recovered/Resolved]

NARRATIVE: CASE EVENT DATE: 20240719
